FAERS Safety Report 21513248 (Version 1)
Quarter: 2022Q4

REPORT INFORMATION
  Report Type: Spontaneous
  Country: US (occurrence: None)
  Receive Date: 20221026
  Receipt Date: 20221026
  Transmission Date: 20230113
  Serious: Yes (Hospitalization)
  Sender: FDA-Public Use
  Company Number: None

PATIENT
  Age: 27 Year
  Sex: Female

DRUGS (2)
  1. CREON [Suspect]
     Active Substance: PANCRELIPASE AMYLASE\PANCRELIPASE LIPASE\PANCRELIPASE PROTEASE
     Indication: Cystic fibrosis
     Dosage: 24000-76000 UNIT ORAL??TAKE 4 CAPSULES BY MOUTH WITH MEALS AND TAKE 3 CAPSULES WITH SNACKS. TAKE UP
     Route: 048
     Dates: start: 20150410
  2. ALBUTEROL [Concomitant]

REACTIONS (1)
  - Illness [None]

NARRATIVE: CASE EVENT DATE: 20221023
